FAERS Safety Report 8387903-0 (Version None)
Quarter: 2012Q2

REPORT INFORMATION
  Report Type: 
  Country: None (occurrence: None)
  Receive Date: 20120525
  Receipt Date: 20120521
  Transmission Date: 20120825
  Serious: Yes (Hospitalization)
  Sender: FDA-Public Use
  Company Number: US-TEVA-334220USA

PATIENT
  Sex: Female

DRUGS (2)
  1. BENZONATATE [Suspect]
  2. AZITHROMYCIN [Suspect]

REACTIONS (6)
  - DRY EYE [None]
  - EYE IRRITATION [None]
  - PNEUMONIA [None]
  - ULCER [None]
  - BLOOD BLISTER [None]
  - ERYTHEMA MULTIFORME [None]
